FAERS Safety Report 10535108 (Version 1)
Quarter: 2014Q4

REPORT INFORMATION
  Report Type: Spontaneous
  Country: US (occurrence: US)
  Receive Date: 20141022
  Receipt Date: 20141022
  Transmission Date: 20150529
  Serious: No
  Sender: FDA-Public Use
  Company Number: US-ASTRAZENECA-2014SE29483

PATIENT
  Age: 81 Year
  Sex: Female
  Weight: 99.8 kg

DRUGS (5)
  1. CRESTOR [Suspect]
     Active Substance: ROSUVASTATIN CALCIUM
     Indication: BLOOD CHOLESTEROL
     Route: 048
  2. METOPROLOL TARTRATE. [Concomitant]
     Active Substance: METOPROLOL TARTRATE
     Indication: BLOOD PRESSURE
  3. WARFARIN [Concomitant]
     Active Substance: WARFARIN
  4. MATURITY MULTI VITAMIN [Concomitant]
     Dosage: NOT REPORTED NR
  5. VITAMIN C [Concomitant]
     Active Substance: ASCORBIC ACID
     Dosage: NOT REPORTED NR

REACTIONS (6)
  - Rheumatoid arthritis [Recovered/Resolved]
  - Gait disturbance [Recovered/Resolved]
  - Pain [Recovered/Resolved]
  - Atrial fibrillation [Recovered/Resolved]
  - Feeling abnormal [Recovered/Resolved]
  - Drug dose omission [Recovered/Resolved]
